FAERS Safety Report 11630633 (Version 1)
Quarter: 2015Q4

REPORT INFORMATION
  Report Type: Spontaneous
  Country: US (occurrence: US)
  Receive Date: 20151014
  Receipt Date: 20151014
  Transmission Date: 20160304
  Serious: No
  Sender: FDA-Public Use
  Company Number: US-INDIVIOR-RB-081322-2015

PATIENT
  Age: 65 Year
  Sex: Male

DRUGS (4)
  1. SUBOXONE [Suspect]
     Active Substance: BUPRENORPHINE HYDROCHLORIDE\NALOXONE HYDROCHLORIDE
     Dosage: 2 MG, TID
     Route: 060
     Dates: end: 20150628
  2. ADVIL PM [Concomitant]
     Active Substance: DIPHENHYDRAMINE CITRATE\IBUPROFEN
     Indication: SLEEP DISORDER
     Dosage: UNK
     Route: 065
     Dates: start: 2015
  3. SUBOXONE [Suspect]
     Active Substance: BUPRENORPHINE HYDROCHLORIDE\NALOXONE HYDROCHLORIDE
     Indication: DRUG DEPENDENCE
     Dosage: 2 MG, TID
     Route: 060
     Dates: start: 2012, end: 20150627
  4. SUBOXONE [Suspect]
     Active Substance: BUPRENORPHINE HYDROCHLORIDE\NALOXONE HYDROCHLORIDE
     Indication: DRUG DEPENDENCE
     Dosage: 4 MG, BID
     Route: 060
     Dates: start: 2014

REACTIONS (11)
  - Product preparation error [Recovered/Resolved]
  - Intentional product misuse [Recovered/Resolved]
  - Intentional underdose [Recovered/Resolved]
  - Pollakiuria [Recovering/Resolving]
  - Micturition urgency [Recovering/Resolving]
  - Poor quality sleep [Recovering/Resolving]
  - Dysuria [Recovering/Resolving]
  - Nephrolithiasis [Recovered/Resolved]
  - Flank pain [Recovered/Resolved]
  - Procedural pain [Recovered/Resolved]
  - Tooth fracture [Not Recovered/Not Resolved]

NARRATIVE: CASE EVENT DATE: 2012
